FAERS Safety Report 9608152 (Version 1)
Quarter: 2013Q4

REPORT INFORMATION
  Report Type: Spontaneous
  Country: US (occurrence: US)
  Receive Date: 20131009
  Receipt Date: 20131009
  Transmission Date: 20140711
  Serious: No
  Sender: FDA-Public Use
  Company Number: US-PFIZER INC-2013285650

PATIENT
  Age: 50 Year
  Sex: Female
  Weight: 54 kg

DRUGS (3)
  1. NORVASC [Suspect]
     Indication: BLOOD PRESSURE ABNORMAL
     Dosage: UNK
     Dates: start: 2011, end: 2011
  2. JANUMET [Suspect]
     Indication: DIABETES MELLITUS
     Dosage: UNK
     Dates: start: 2011, end: 2011
  3. CRESTOR [Suspect]
     Indication: BLOOD CHOLESTEROL INCREASED
     Dosage: UNK
     Dates: start: 2011, end: 2011

REACTIONS (3)
  - Rash generalised [Unknown]
  - Abdominal discomfort [Unknown]
  - Food allergy [Unknown]
